FAERS Safety Report 19583587 (Version 2)
Quarter: 2021Q3

REPORT INFORMATION
  Report Type: Report from Study
  Country: IE (occurrence: IE)
  Receive Date: 20210720
  Receipt Date: 20210727
  Transmission Date: 20211014
  Serious: Yes (Other)
  Sender: FDA-Public Use
  Company Number: IE-MYLANLABS-2021M1042784

PATIENT
  Sex: Female

DRUGS (1)
  1. PIPERACILLIN/TAZOBACTAM [Suspect]
     Active Substance: PIPERACILLIN SODIUM\TAZOBACTAM SODIUM
     Indication: BRONCHIECTASIS
     Dosage: 18 GRAM, FREQUENCY: 23 HOUR CONTINUOUS INFUSION.
     Route: 042
     Dates: start: 20210105

REACTIONS (5)
  - Sleep disorder [Unknown]
  - Abdominal discomfort [Unknown]
  - Cough [Unknown]
  - Rash [Unknown]
  - Malaise [Unknown]

NARRATIVE: CASE EVENT DATE: 20210110
